FAERS Safety Report 25766887 (Version 1)
Quarter: 2025Q3

REPORT INFORMATION
  Report Type: Spontaneous
  Country: US (occurrence: US)
  Receive Date: 20250905
  Receipt Date: 20250905
  Transmission Date: 20251020
  Serious: Yes (Hospitalization)
  Sender: SANDOZ
  Company Number: US-SANDOZ-SDZ2025US063993

PATIENT
  Age: 79 Year
  Sex: Female

DRUGS (1)
  1. PYRIDOSTIGMINE [Suspect]
     Active Substance: PYRIDOSTIGMINE
     Indication: Product used for unknown indication
     Route: 065

REACTIONS (1)
  - Bradycardia [Unknown]
